FAERS Safety Report 5290598-6 (Version None)
Quarter: 2007Q2

REPORT INFORMATION
  Report Type: 
  Country: None (occurrence: None)
  Receive Date: 20070405
  Receipt Date: 20070405
  Transmission Date: 20071010
  Serious: Yes (Hospitalization)
  Sender: FDA-Public Use
  Company Number: None

PATIENT
  Age: 73 Year
  Sex: Male
  Weight: 55.8 kg

DRUGS (4)
  1. CARBAMAZEPINE [Suspect]
     Indication: CONVULSION
     Dosage: 200MG  PO  Q8H   (DURATION: LONG TERM)
     Route: 048
  2. METOPROLOL SUCCINATE [Concomitant]
  3. RISPERDAL [Concomitant]
  4. LORAZEPAM [Concomitant]

REACTIONS (5)
  - AGITATION [None]
  - ASTHENIA [None]
  - HYPERTENSION [None]
  - INAPPROPRIATE ANTIDIURETIC HORMONE SECRETION [None]
  - RESTLESSNESS [None]
